FAERS Safety Report 25193203 (Version 2)
Quarter: 2025Q2

REPORT INFORMATION
  Report Type: Report from Study
  Country: US (occurrence: US)
  Receive Date: 20250414
  Receipt Date: 20250426
  Transmission Date: 20250717
  Serious: Yes (Hospitalization)
  Sender: ABBVIE
  Company Number: US-ABBVIE-6216266

PATIENT
  Age: 32 Year
  Sex: Female

DRUGS (3)
  1. SKYRIZI [Suspect]
     Active Substance: RISANKIZUMAB-RZAA
     Indication: Crohn^s disease
     Dosage: FORM STRENGTH: 360 MILLIGRAM
     Route: 058
     Dates: start: 2023
  2. SKYRIZI [Suspect]
     Active Substance: RISANKIZUMAB-RZAA
     Dosage: FORM STRENGTH: 360 MILLIGRAM
     Route: 058
     Dates: start: 20240403, end: 202412
  3. SKYRIZI [Suspect]
     Active Substance: RISANKIZUMAB-RZAA
     Route: 058

REACTIONS (7)
  - Crohn^s disease [Recovered/Resolved]
  - Liver function test increased [Unknown]
  - Inappropriate schedule of product administration [Unknown]
  - Stress [Unknown]
  - C-reactive protein decreased [Unknown]
  - Device issue [Unknown]
  - Product administration error [Unknown]

NARRATIVE: CASE EVENT DATE: 20250402
